FAERS Safety Report 6573511-0 (Version None)
Quarter: 2010Q1

REPORT INFORMATION
  Report Type: 
  Country: None (occurrence: None)
  Receive Date: 20100208
  Receipt Date: 20100201
  Transmission Date: 20100710
  Serious: Yes (Hospitalization, Other)
  Sender: FDA-Public Use
  Company Number: US-RB-020805-09

PATIENT
  Age: 36 Year
  Sex: Male

DRUGS (1)
  1. SUBOXONE [Suspect]
     Route: 060
     Dates: start: 20090917

REACTIONS (1)
  - CONVULSION [None]
